FAERS Safety Report 13515365 (Version 1)
Quarter: 2017Q2

REPORT INFORMATION
  Report Type: Spontaneous
  Country: US (occurrence: US)
  Receive Date: 20170504
  Receipt Date: 20170504
  Transmission Date: 20170830
  Serious: No
  Sender: FDA-Public Use
  Company Number: US-BAUSCH-BL-2016-005422

PATIENT
  Age: 49 Year
  Sex: Female
  Weight: 90.8 kg

DRUGS (2)
  1. HYDROCHLOROTHIAZIDE. [Concomitant]
     Active Substance: HYDROCHLOROTHIAZIDE
     Indication: HYPERTENSION
     Route: 065
  2. ZYCLARA [Suspect]
     Active Substance: IMIQUIMOD
     Indication: ACTINIC KERATOSIS
     Dosage: ONCE NIGHTY TO HANDS AND CHEST
     Route: 061
     Dates: start: 201602

REACTIONS (3)
  - Lip pain [Not Recovered/Not Resolved]
  - Accidental exposure to product [Unknown]
  - Malaise [Not Recovered/Not Resolved]
